FAERS Safety Report 8886737 (Version 1)
Quarter: 2012Q4

REPORT INFORMATION
  Report Type: 
  Country: BR (occurrence: BR)
  Receive Date: 20121105
  Receipt Date: 20121105
  Transmission Date: 20130627
  Serious: Yes (Hospitalization, Other)
  Sender: FDA-Public Use
  Company Number: BR-ABBOTT-12P-020-1002047-00

PATIENT
  Age: 54 None
  Sex: Male
  Weight: 110 kg

DRUGS (6)
  1. RITMONORM (PROPAFENONE 300MG) [Suspect]
     Indication: ATRIAL FIBRILLATION
  2. RITMONORM (PROPAFENONE 300MG) [Suspect]
     Route: 048
  3. RIVOTRIL [Concomitant]
     Indication: INSOMNIA
  4. CRESTOR [Concomitant]
     Indication: PRODUCT USED FOR UNKNOWN INDICATION
  5. ALENIA [Concomitant]
     Indication: PRODUCT USED FOR UNKNOWN INDICATION
  6. SILIA [Concomitant]
     Indication: PRODUCT USED FOR UNKNOWN INDICATION

REACTIONS (5)
  - Cardiac disorder [Unknown]
  - Atrial fibrillation [Unknown]
  - Insomnia [Unknown]
  - Dyspnoea [Unknown]
  - Incorrect dose administered [Unknown]
